FAERS Safety Report 9712873 (Version 1)
Quarter: 2013Q4

REPORT INFORMATION
  Report Type: Spontaneous
  Country: US (occurrence: US)
  Receive Date: 20131126
  Receipt Date: 20131126
  Transmission Date: 20140711
  Serious: No
  Sender: FDA-Public Use
  Company Number: US-BRISTOL-MYERS SQUIBB COMPANY-19308170

PATIENT
  Age: 66 Year
  Sex: Female
  Weight: 65.76 kg

DRUGS (1)
  1. BYDUREON [Suspect]
     Indication: TYPE 2 DIABETES MELLITUS
     Dosage: RECENT INJECTION ON 2013

REACTIONS (1)
  - Injection site reaction [Not Recovered/Not Resolved]
